FAERS Safety Report 25533073 (Version 1)
Quarter: 2025Q3

REPORT INFORMATION
  Report Type: Report from Study
  Country: CH (occurrence: CH)
  Receive Date: 20250709
  Receipt Date: 20250709
  Transmission Date: 20251020
  Serious: Yes (Death, Other)
  Sender: RANBAXY
  Company Number: CH-SUN PHARMACEUTICAL INDUSTRIES LTD-2025R1-515832

PATIENT

DRUGS (1)
  1. SUNITINIB [Suspect]
     Active Substance: SUNITINIB
     Indication: Phaeochromocytoma
     Route: 065

REACTIONS (4)
  - Disease progression [Unknown]
  - C-reactive protein increased [Unknown]
  - Fatigue [Unknown]
  - Condition aggravated [Fatal]
